FAERS Safety Report 16424437 (Version 1)
Quarter: 2019Q2

REPORT INFORMATION
  Report Type: Report from Study
  Country: CA (occurrence: CA)
  Receive Date: 20190613
  Receipt Date: 20190613
  Transmission Date: 20190711
  Serious: Yes (Other)
  Sender: FDA-Public Use
  Company Number: CA-BAYER-2019-093339

PATIENT
  Age: 78 Year
  Sex: Female

DRUGS (2)
  1. STIVARGA [Suspect]
     Active Substance: REGORAFENIB
     Indication: COLORECTAL CANCER METASTATIC
     Dosage: 80 MG, QD IN THE MORNING
     Route: 048
     Dates: start: 20190504, end: 201905
  2. STIVARGA [Suspect]
     Active Substance: REGORAFENIB
     Indication: COLORECTAL CANCER METASTATIC
     Dosage: 160 MG, TID
     Route: 048
     Dates: start: 201905, end: 201905

REACTIONS (6)
  - Blood pressure decreased [Recovering/Resolving]
  - Off label use [Not Recovered/Not Resolved]
  - Dysphonia [Not Recovered/Not Resolved]
  - Internal haemorrhage [Unknown]
  - Dizziness [Recovering/Resolving]
  - Overdose [None]

NARRATIVE: CASE EVENT DATE: 201905
